FAERS Safety Report 17665750 (Version 1)
Quarter: 2020Q2

REPORT INFORMATION
  Report Type: Report from Study
  Country: US (occurrence: US)
  Receive Date: 20200414
  Receipt Date: 20200414
  Transmission Date: 20200713
  Serious: Yes (Hospitalization)
  Sender: FDA-Public Use
  Company Number: US-TEVA-2020-US-1220324

PATIENT
  Age: 52 Year
  Sex: Female
  Weight: 97.6 kg

DRUGS (33)
  1. TREANDA [Suspect]
     Active Substance: BENDAMUSTINE HYDROCHLORIDE
     Indication: PLASMA CELL MYELOMA
     Route: 065
  2. PHYTONADION [Concomitant]
     Active Substance: PHYTONADIONE
     Route: 048
  3. ULTRAM [Concomitant]
     Active Substance: TRAMADOL HYDROCHLORIDE
  4. CAPHOSOL [Concomitant]
     Active Substance: CALCIUM CHLORIDE\SODIUM CHLORIDE\SODIUM PHOSPHATE, DIBASIC, ANHYDROUS\SODIUM PHOSPHATE, MONOBASIC, ANHYDROUS
     Dosage: 30 MILLIGRAM/MILLILITERS DAILY;
  5. POTASSIUM CHLORIDE. [Concomitant]
     Active Substance: POTASSIUM CHLORIDE
  6. ATIVAN [Concomitant]
     Active Substance: LORAZEPAM
  7. IMODIUM [Concomitant]
     Active Substance: LOPERAMIDE HYDROCHLORIDE
  8. LIDOCAINE 1% [Concomitant]
     Active Substance: LIDOCAINE
  9. ACYCLOVIR. [Concomitant]
     Active Substance: ACYCLOVIR
  10. CALCIUM CARBONATE. [Concomitant]
     Active Substance: CALCIUM CARBONATE
     Route: 048
  11. MAXIPIME [Concomitant]
     Active Substance: CEFEPIME HYDROCHLORIDE
  12. SODIUM CHLORIDE. [Concomitant]
     Active Substance: SODIUM CHLORIDE
     Route: 042
  13. CYTARABINE. [Suspect]
     Active Substance: CYTARABINE
     Indication: PLASMA CELL MYELOMA
     Route: 065
  14. GLUCAGON. [Concomitant]
     Active Substance: GLUCAGON
  15. GLUCOSE 40% ORAL GEL [Concomitant]
     Route: 048
  16. ROXICODONE [Concomitant]
     Active Substance: OXYCODONE HYDROCHLORIDE
  17. TRADJENTA [Concomitant]
     Active Substance: LINAGLIPTIN
  18. ZOFRAN [Concomitant]
     Active Substance: ONDANSETRON HYDROCHLORIDE
     Dosage: EVERY 8 HOURS
     Route: 048
  19. ULCEREASE [Concomitant]
     Active Substance: PHENOL
  20. CATHFLO ACTIVASE [Concomitant]
     Active Substance: ALTEPLASE
     Route: 042
  21. DIFLUCAN [Concomitant]
     Active Substance: FLUCONAZOLE
     Route: 042
  22. HUMALOG CORRECTIONAL [Concomitant]
     Route: 058
  23. MAGNESIUM SULFATE. [Concomitant]
     Active Substance: MAGNESIUM SULFATE
     Route: 042
  24. PROTONIX [Concomitant]
     Active Substance: PANTOPRAZOLE SODIUM
     Route: 042
  25. TYLENOL [Concomitant]
     Active Substance: ACETAMINOPHEN
     Route: 048
  26. JARDIANCE [Concomitant]
     Active Substance: EMPAGLIFLOZIN
  27. COMPAZINE [Concomitant]
     Active Substance: PROCHLORPERAZINE MALEATE
     Route: 048
  28. ZARXIO [Concomitant]
     Active Substance: FILGRASTIM-SNDZ
     Route: 058
  29. ETOPOSIDE. [Suspect]
     Active Substance: ETOPOSIDE
     Indication: PLASMA CELL MYELOMA
     Route: 065
  30. DEXTROSE. [Concomitant]
     Active Substance: DEXTROSE
     Route: 042
  31. NORVASC [Concomitant]
     Active Substance: AMLODIPINE BESYLATE
     Dosage: 10 MILLIGRAM DAILY;
     Route: 048
  32. VITAMIN D3 [Concomitant]
     Active Substance: CHOLECALCIFEROL
     Dosage: 400 UNITS
  33. MELPHALAN. [Suspect]
     Active Substance: MELPHALAN
     Indication: PLASMA CELL MYELOMA
     Route: 065

REACTIONS (2)
  - Febrile neutropenia [Unknown]
  - Mucosal inflammation [Unknown]

NARRATIVE: CASE EVENT DATE: 20200331
